FAERS Safety Report 8134529 (Version 4)
Quarter: 2016Q2

REPORT INFORMATION
  Report Type: Spontaneous
  Country: JP (occurrence: JP)
  Receive Date: 20110913
  Receipt Date: 20160615
  Transmission Date: 20160815
  Serious: Yes (Other)
  Sender: FDA-Public Use
  Company Number: JP-ELI_LILLY_AND_COMPANY-JP201108000871

PATIENT
  Age: 37 Year
  Sex: Female
  Weight: 43.2 kg

DRUGS (15)
  1. DICLOFENAC SODIUM. [Concomitant]
     Active Substance: DICLOFENAC SODIUM
     Route: 048
  2. PREGABALINE [Concomitant]
     Active Substance: PREGABALIN
     Dosage: UNK
  3. KETALAR [Concomitant]
     Active Substance: KETAMINE HYDROCHLORIDE
     Dosage: UNK
     Route: 042
  4. CYMBALTA [Suspect]
     Active Substance: DULOXETINE HYDROCHLORIDE
     Indication: DEPRESSION
     Dosage: 20 MG, QD
     Route: 048
     Dates: start: 20110629, end: 20110630
  5. MAGLAX [Concomitant]
     Active Substance: MAGNESIUM OXIDE
     Route: 048
  6. LANDSEN [Concomitant]
     Active Substance: CLONAZEPAM
     Dosage: UNK
     Route: 048
  7. GASCON [Concomitant]
     Active Substance: DIMETHICONE
     Route: 048
  8. CYMBALTA [Suspect]
     Active Substance: DULOXETINE HYDROCHLORIDE
     Indication: NEURALGIA
  9. DUROTEP [Concomitant]
     Active Substance: FENTANYL
     Dosage: 23.1 MG, UNK
  10. PAXIL [Concomitant]
     Active Substance: PAROXETINE HYDROCHLORIDE
     Indication: DEPRESSION
     Dosage: UNK
     Dates: end: 20110628
  11. FENTANYL. [Concomitant]
     Active Substance: FENTANYL
     Dosage: UNK
     Route: 042
  12. ANTIBIOTICS-RESISTANT LACTIC ACID BACTERIAE [Concomitant]
     Active Substance: UNSPECIFIED INGREDIENT
     Route: 048
  13. GASMOTIN [Concomitant]
     Active Substance: MOSAPRIDE CITRATE
     Route: 048
  14. DEPAS [Concomitant]
     Active Substance: ETIZOLAM
     Route: 048
  15. DUROTEP [Concomitant]
     Active Substance: FENTANYL
     Dosage: 12.6 MG, UNK
     Route: 062

REACTIONS (1)
  - Hepatic function abnormal [Recovered/Resolved]

NARRATIVE: CASE EVENT DATE: 20110630
